FAERS Safety Report 5825940-8 (Version None)
Quarter: 2008Q3

REPORT INFORMATION
  Report Type: 
  Country: None (occurrence: None)
  Receive Date: 20080729
  Receipt Date: 20080721
  Transmission Date: 20090109
  Serious: Yes (Other)
  Sender: FDA-Public Use
  Company Number: PHHY2008DE14641

PATIENT
  Sex: Male

DRUGS (3)
  1. RASILEZ [Suspect]
     Indication: HYPERTENSION
     Dosage: UNK
     Dates: start: 20080701
  2. NEBIVOLOL HCL [Suspect]
     Dosage: 5 MG/D
     Dates: start: 20080701
  3. NEBIVOLOL HCL [Suspect]
     Dosage: 1.25 MG/D
     Dates: start: 20080701

REACTIONS (5)
  - ANGINA PECTORIS [None]
  - ARRHYTHMIA [None]
  - HEART RATE DECREASED [None]
  - NEOPLASM [None]
  - TREMOR [None]
